FAERS Safety Report 6422216-5 (Version None)
Quarter: 2009Q4

REPORT INFORMATION
  Report Type: 
  Country: None (occurrence: None)
  Receive Date: 20091030
  Receipt Date: 20091028
  Transmission Date: 20100525
  Serious: Yes (Death, Hospitalization)
  Sender: FDA-Public Use
  Company Number: PHHY2009MX40278

PATIENT
  Sex: Male

DRUGS (4)
  1. STALEVO 100 [Suspect]
     Indication: PARKINSON'S DISEASE
     Dosage: 262.5 MG, 3 TABLETS DAILY
     Route: 048
     Dates: start: 20070601, end: 20090913
  2. LEVODOPA [Concomitant]
     Indication: PARKINSON'S DISEASE
     Dosage: 2 TABLETS PER DAY
     Route: 048
  3. SIFROL [Concomitant]
     Indication: TREMOR
     Dosage: 1 TABLET DAILY
     Route: 048
  4. PROPRANOLOL [Concomitant]
     Indication: TREMOR

REACTIONS (3)
  - ABDOMINAL PAIN [None]
  - GASTRITIS [None]
  - MYOCARDIAL INFARCTION [None]
